FAERS Safety Report 5799343-9 (Version None)
Quarter: 2008Q3

REPORT INFORMATION
  Report Type: 
  Country: None (occurrence: None)
  Receive Date: 20080702
  Receipt Date: 20080624
  Transmission Date: 20090109
  Serious: Yes (Other)
  Sender: FDA-Public Use
  Company Number: JP-PFIZER INC-2008053310

PATIENT
  Sex: Female

DRUGS (1)
  1. CABASER [Suspect]
     Indication: HYPERPROLACTINAEMIA
     Dosage: TEXT:ONCE/WEEK
     Route: 048

REACTIONS (3)
  - CHEST DISCOMFORT [None]
  - PALPITATIONS [None]
  - TREMOR [None]
